FAERS Safety Report 10168731 (Version 1)
Quarter: 2014Q2

REPORT INFORMATION
  Report Type: Spontaneous
  Country: CN (occurrence: None)
  Receive Date: 20140509
  Receipt Date: 20140509
  Transmission Date: 20141212
  Serious: Yes (Hospitalization, Other)
  Sender: FDA-Public Use
  Company Number: 7290267

PATIENT
  Sex: Female

DRUGS (2)
  1. EUTHYROX [Suspect]
     Indication: HYPOTHYROIDISM
  2. NIFURATEL [Suspect]
     Indication: VAGINAL INFECTION

REACTIONS (12)
  - Scimitar syndrome [None]
  - Foetal growth restriction [None]
  - Foetal distress syndrome [None]
  - Maternal drugs affecting foetus [None]
  - Caesarean section [None]
  - Somnolence [None]
  - Feeding disorder neonatal [None]
  - Congenital nose malformation [None]
  - Congenital eye disorder [None]
  - Congenital eyelid malformation [None]
  - Pterygium colli [None]
  - Congenital jaw malformation [None]
